FAERS Safety Report 8332768-6 (Version None)
Quarter: 2012Q2

REPORT INFORMATION
  Report Type: 
  Country: None (occurrence: None)
  Receive Date: 20120503
  Receipt Date: 20120420
  Transmission Date: 20120825
  Serious: Yes (Other)
  Sender: FDA-Public Use
  Company Number: DE-AMGEN-DEUSP2012013550

PATIENT
  Age: 39 Year
  Sex: Female
  Weight: 61 kg

DRUGS (1)
  1. ENBREL [Suspect]
     Indication: PSORIASIS
     Dosage: 50 MG, WEEKLY
     Dates: start: 20100118, end: 20120201

REACTIONS (6)
  - PAIN IN EXTREMITY [None]
  - PARAESTHESIA [None]
  - HEADACHE [None]
  - MUSCULAR WEAKNESS [None]
  - TINNITUS [None]
  - BURNING SENSATION [None]
